FAERS Safety Report 6416019-5 (Version None)
Quarter: 2009Q4

REPORT INFORMATION
  Report Type: 
  Country: None (occurrence: None)
  Receive Date: 20091027
  Receipt Date: 20091022
  Transmission Date: 20100525
  Serious: Yes (Disabling)
  Sender: FDA-Public Use
  Company Number: DK-BRACCO-000029

PATIENT
  Sex: Male

DRUGS (11)
  1. CONTRAST MEDIA [Suspect]
     Indication: DIAGNOSTIC PROCEDURE
     Route: 042
     Dates: start: 20040421, end: 20040421
  2. NEORECORMON [Concomitant]
     Route: 065
  3. VENOFER [Concomitant]
     Route: 042
  4. PLENDIL [Concomitant]
     Route: 048
  5. MAGNYL [Concomitant]
     Route: 065
  6. DIURAL [Concomitant]
     Route: 065
  7. HEXAPRESS [Concomitant]
     Route: 048
  8. CETIRIZINE HCL [Concomitant]
     Route: 048
  9. LAKTULOSE [Concomitant]
     Route: 065
  10. PHOS-EX [Concomitant]
     Route: 048
  11. B-COMBIN [Concomitant]
     Route: 065

REACTIONS (1)
  - NEPHROGENIC SYSTEMIC FIBROSIS [None]
